FAERS Safety Report 6901823-7 (Version None)
Quarter: 2010Q3

REPORT INFORMATION
  Report Type: 
  Country: None (occurrence: None)
  Receive Date: 20100803
  Receipt Date: 20080324
  Transmission Date: 20110219
  Serious: Yes (Other)
  Sender: FDA-Public Use
  Company Number: US-PFIZER INC-2008026601

PATIENT
  Sex: Female
  Weight: 61.2 kg

DRUGS (9)
  1. LYRICA [Suspect]
     Indication: NEURALGIA
     Dates: start: 20080312
  2. LYRICA [Suspect]
     Indication: FACIAL PAIN
  3. ALCOHOL [Suspect]
  4. CYMBALTA [Concomitant]
  5. LAMICTAL [Concomitant]
  6. FENTANYL ^JANSSEN^ [Concomitant]
  7. IBUPROFEN [Concomitant]
  8. LISINOPRIL [Concomitant]
  9. PRILOSEC [Concomitant]

REACTIONS (19)
  - BURNING SENSATION [None]
  - COGNITIVE DISORDER [None]
  - CONSTIPATION [None]
  - DEHYDRATION [None]
  - DRY EYE [None]
  - DRY MOUTH [None]
  - FATIGUE [None]
  - FEELING ABNORMAL [None]
  - FEELING DRUNK [None]
  - HEADACHE [None]
  - ILL-DEFINED DISORDER [None]
  - INITIAL INSOMNIA [None]
  - MEMORY IMPAIRMENT [None]
  - NASAL DRYNESS [None]
  - PAIN [None]
  - SOMNOLENCE [None]
  - URINARY TRACT DISORDER [None]
  - VISION BLURRED [None]
  - WEIGHT INCREASED [None]
